FAERS Safety Report 8993112 (Version 1)
Quarter: 2013Q1

REPORT INFORMATION
  Report Type: Report from Study
  Country: PL (occurrence: PL)
  Receive Date: 20130102
  Receipt Date: 20130102
  Transmission Date: 20140127
  Serious: Yes (Death, Life-Threatening, Hospitalization)
  Sender: FDA-Public Use
  Company Number: PL-ROCHE-GNE279362

PATIENT
  Age: 43 Year
  Sex: Male
  Weight: 120 kg

DRUGS (6)
  1. FONDAPARINUX SODIUM [Suspect]
     Indication: PULMONARY EMBOLISM
     Dosage: 10 MG, SINGLE
     Route: 058
     Dates: start: 20081209, end: 20081209
  2. ZINACEF [Concomitant]
     Indication: PRODUCT USED FOR UNKNOWN INDICATION
     Dosage: 750 MG, X1
     Route: 042
     Dates: start: 20081209, end: 20081209
  3. METOPROLOL [Concomitant]
     Indication: PRODUCT USED FOR UNKNOWN INDICATION
     Dosage: 12.5 MG, X1
     Route: 048
     Dates: start: 20081209, end: 20081209
  4. ADRENALINE [Concomitant]
     Indication: PRODUCT USED FOR UNKNOWN INDICATION
     Dosage: 12 MG, CONTINUOUS
     Route: 042
     Dates: start: 20081209, end: 20081210
  5. ATROPINE [Concomitant]
     Indication: PRODUCT USED FOR UNKNOWN INDICATION
     Dosage: 3 MG, X1
     Route: 042
     Dates: start: 20081209, end: 20081209
  6. TENECTEPLASE [Suspect]
     Indication: PULMONARY EMBOLISM
     Dosage: 50 MG, SINGLE
     Route: 040
     Dates: start: 20081209, end: 20081209

REACTIONS (2)
  - Circulatory collapse [Fatal]
  - Mucosal haemorrhage [Recovered/Resolved with Sequelae]
